FAERS Safety Report 15885091 (Version 5)
Quarter: 2019Q2

REPORT INFORMATION
  Report Type: Report from Study
  Country: US (occurrence: US)
  Receive Date: 20190129
  Receipt Date: 20190620
  Transmission Date: 20190711
  Serious: Yes (Hospitalization, Other)
  Sender: FDA-Public Use
  Company Number: US-AMGEN-USASP2019010954

PATIENT
  Age: 69 Year
  Sex: Female
  Weight: 98.4 kg

DRUGS (6)
  1. NEULASTA [Suspect]
     Active Substance: PEGFILGRASTIM
     Indication: WHITE BLOOD CELL COUNT
     Dosage: UNK
     Route: 065
     Dates: start: 2019
  2. ENBREL [Suspect]
     Active Substance: ETANERCEPT
     Dosage: 50 MILLIGRAM, QWK
     Route: 065
     Dates: start: 2019
  3. LOVENOX [Concomitant]
     Active Substance: ENOXAPARIN SODIUM
     Dosage: UNK
  4. TYLENOL [Concomitant]
     Active Substance: ACETAMINOPHEN
     Indication: PAIN
     Dosage: 3000 MILLIGRAM, QD
  5. PREDNISONE. [Concomitant]
     Active Substance: PREDNISONE
     Dosage: UNK
     Dates: start: 2019
  6. ENBREL [Suspect]
     Active Substance: ETANERCEPT
     Indication: RHEUMATOID ARTHRITIS
     Dosage: 50 MILLIGRAM, QWK
     Route: 065
     Dates: start: 2000, end: 201901

REACTIONS (9)
  - Colon cancer stage III [Recovering/Resolving]
  - Wrong technique in product usage process [Unknown]
  - Eye inflammation [Recovered/Resolved]
  - Lacrimation increased [Recovered/Resolved]
  - Therapeutic product effect decreased [Unknown]
  - Photophobia [Recovered/Resolved]
  - White blood cell disorder [Unknown]
  - Eye pain [Recovered/Resolved]
  - Rheumatoid arthritis [Recovered/Resolved]

NARRATIVE: CASE EVENT DATE: 2019
